FAERS Safety Report 20941900 (Version 1)
Quarter: 2022Q2

REPORT INFORMATION
  Report Type: Spontaneous
  Country: US (occurrence: US)
  Receive Date: 20220610
  Receipt Date: 20220610
  Transmission Date: 20220721
  Serious: Yes (Life-Threatening, Hospitalization)
  Sender: FDA-Public Use
  Company Number: US-STRIDES ARCOLAB LIMITED-2022SP006688

PATIENT
  Age: 60 Year
  Sex: Female

DRUGS (5)
  1. TRIAMCINOLONE ACETONIDE [Suspect]
     Active Substance: TRIAMCINOLONE ACETONIDE
     Indication: Cutaneous vasculitis
     Dosage: UNK, (APPLIED TWICE A DAY) OINMENT
     Route: 061
  2. PREDNISOLONE [Suspect]
     Active Substance: PREDNISOLONE
     Indication: Cutaneous vasculitis
     Dosage: 60 MILLIGRAM
     Route: 048
  3. PREDNISOLONE [Suspect]
     Active Substance: PREDNISOLONE
     Dosage: 1 MILLIGRAM/KILOGRAM PER DAY (WITH TAPER)
     Route: 048
  4. OPDIVO [Suspect]
     Active Substance: NIVOLUMAB
     Indication: Clear cell renal cell carcinoma
     Dosage: 3 MILLIGRAM/KILOGRAM
     Route: 065
  5. YERVOY [Suspect]
     Active Substance: IPILIMUMAB
     Indication: Clear cell renal cell carcinoma
     Dosage: 1 MILLIGRAM/KILOGRAM (EVERY 3 WEEKS (DAY 1))
     Route: 065

REACTIONS (4)
  - Posterior reversible encephalopathy syndrome [Recovered/Resolved]
  - Hypertension [Unknown]
  - Septic shock [Unknown]
  - Bacteraemia [Unknown]
